FAERS Safety Report 9043632 (Version 1)
Quarter: 2013Q1

REPORT INFORMATION
  Report Type: Report from Study
  Country: US (occurrence: US)
  Receive Date: 20130129
  Receipt Date: 20130129
  Transmission Date: 20140127
  Serious: No
  Sender: FDA-Public Use
  Company Number: US-ABBOTT-12P-163-0911624-00

PATIENT
  Age: 56 Year
  Sex: Male
  Weight: 77.18 kg

DRUGS (6)
  1. HUMIRA 40 MG/0.8 ML PEN [Suspect]
     Indication: PSORIASIS
     Dates: start: 201003
  2. HYDROCHLOROTHIAZIDE [Concomitant]
     Indication: HYPERTENSION
  3. PROPRANOLOL [Concomitant]
     Indication: HYPERTENSION
  4. WELLBUTRIN [Concomitant]
     Indication: PRODUCT USED FOR UNKNOWN INDICATION
  5. LYRICA [Concomitant]
     Indication: PRODUCT USED FOR UNKNOWN INDICATION
  6. ZOLOFT [Concomitant]
     Indication: PRODUCT USED FOR UNKNOWN INDICATION

REACTIONS (4)
  - Nasopharyngitis [Recovering/Resolving]
  - Pulmonary congestion [Recovering/Resolving]
  - Cough [Recovering/Resolving]
  - Increased upper airway secretion [Recovering/Resolving]
